APPROVED DRUG PRODUCT: HETRAZAN
Active Ingredient: DIETHYLCARBAMAZINE CITRATE
Strength: 50MG
Dosage Form/Route: TABLET;ORAL
Application: N006459 | Product #001
Applicant: LEDERLE LABORATORIES DIV AMERICAN CYANAMID CO
Approved: Approved Prior to Jan 1, 1982 | RLD: No | RS: No | Type: DISCN